FAERS Safety Report 9186020 (Version 2)
Quarter: 2013Q2

REPORT INFORMATION
  Report Type: Spontaneous
  Country: CA (occurrence: CA)
  Receive Date: 20130325
  Receipt Date: 20130429
  Transmission Date: 20140414
  Serious: Yes (Hospitalization)
  Sender: FDA-Public Use
  Company Number: CA-AMGEN-CANSP2013018423

PATIENT
  Age: 76 Year
  Sex: Male
  Weight: 70.3 kg

DRUGS (3)
  1. XGEVA [Suspect]
     Indication: PROSTATE CANCER
     Dosage: 120 MG, EVERY 30 DAYS
     Route: 058
     Dates: start: 20121210, end: 20130110
  2. FIRMAGON                           /01764801/ [Concomitant]
     Indication: PROSTATE CANCER
     Dosage: 80 MG, EVERY 30 DAYS
     Route: 058
     Dates: start: 20120911
  3. VITAMIN D2 + CALCIUM               /00202201/ [Concomitant]
     Dosage: 500 MG, BID
     Route: 048

REACTIONS (2)
  - Supraventricular tachycardia [Unknown]
  - Hypocalcaemia [Recovering/Resolving]
